FAERS Safety Report 25086855 (Version 1)
Quarter: 2025Q1

REPORT INFORMATION
  Report Type: Report from Study
  Country: US (occurrence: US)
  Receive Date: 20250318
  Receipt Date: 20250318
  Transmission Date: 20250409
  Serious: Yes (Other)
  Sender: ABBVIE
  Company Number: US-ABBVIE-6177024

PATIENT
  Age: 40 Year
  Sex: Male

DRUGS (2)
  1. VENCLEXTA [Suspect]
     Active Substance: VENETOCLAX
     Indication: Blastic plasmacytoid dendritic cell neoplasia
     Route: 048
     Dates: start: 201912
  2. PIVEKIMAB SUNIRINE [Suspect]
     Active Substance: PIVEKIMAB SUNIRINE
     Indication: Blastic plasmacytoid dendritic cell neoplasia
     Route: 065
     Dates: start: 201912, end: 201912

REACTIONS (3)
  - Blastic plasmacytoid dendritic cell neoplasia [Unknown]
  - Off label use [Unknown]
  - Drug ineffective [Unknown]
